FAERS Safety Report 10915093 (Version 1)
Quarter: 2015Q1

REPORT INFORMATION
  Report Type: Spontaneous
  Country: IT (occurrence: IT)
  Receive Date: 20150315
  Receipt Date: 20150315
  Transmission Date: 20150721
  Serious: Yes (Hospitalization)
  Sender: FDA-Public Use
  Company Number: IT-ELI_LILLY_AND_COMPANY-IT201503001305

PATIENT
  Age: 1 Year
  Sex: Male
  Weight: 9 kg

DRUGS (1)
  1. ZYPREXA [Suspect]
     Active Substance: OLANZAPINE
     Indication: ACCIDENTAL EXPOSURE TO PRODUCT BY CHILD
     Dosage: 10 MG, QD
     Route: 048
     Dates: start: 20141127, end: 20141127

REACTIONS (7)
  - Crying [Recovered/Resolved]
  - Irritability [Recovered/Resolved]
  - Accidental exposure to product by child [Unknown]
  - Off label use [Unknown]
  - Somnolence [Recovered/Resolved]
  - Blood creatine phosphokinase increased [Unknown]
  - Sinus tachycardia [Unknown]

NARRATIVE: CASE EVENT DATE: 20141127
